FAERS Safety Report 8109758-1 (Version None)
Quarter: 2012Q1

REPORT INFORMATION
  Report Type: 
  Country: None (occurrence: None)
  Receive Date: 20120202
  Receipt Date: 20120118
  Transmission Date: 20120608
  Serious: No
  Sender: FDA-Public Use
  Company Number: US-AMGEN-USASP2011000772

PATIENT
  Age: 40 Year
  Sex: Female
  Weight: 38.549 kg

DRUGS (2)
  1. ENBREL [Suspect]
     Indication: RHEUMATOID ARTHRITIS
     Dosage: 25 MG, 2 TIMES/WK
     Route: 058
  2. ENBREL [Suspect]
     Dates: start: 20080721

REACTIONS (3)
  - LIGAMENT RUPTURE [None]
  - FALL [None]
  - CARTILAGE INJURY [None]
